FAERS Safety Report 7582156-5 (Version None)
Quarter: 2011Q2

REPORT INFORMATION
  Report Type: 
  Country: None (occurrence: None)
  Receive Date: 20110630
  Receipt Date: 20090127
  Transmission Date: 20111010
  Serious: No
  Sender: FDA-Public Use
  Company Number: 2008BI024556

PATIENT
  Age: 32 Year
  Sex: Female

DRUGS (1)
  1. TYSABRI [Suspect]
     Indication: MULTIPLE SCLEROSIS
     Route: 042
     Dates: start: 20080821, end: 20080821

REACTIONS (5)
  - LIP PRURITUS [None]
  - LIP SWELLING [None]
  - SWELLING FACE [None]
  - HYPERSENSITIVITY [None]
  - PRURITUS [None]
